FAERS Safety Report 6584702-7 (Version None)
Quarter: 2010Q1

REPORT INFORMATION
  Report Type: 
  Country: None (occurrence: None)
  Receive Date: 20100217
  Receipt Date: 20100204
  Transmission Date: 20100710
  Serious: Yes (Hospitalization)
  Sender: FDA-Public Use
  Company Number: PHHY2010JP06549

PATIENT
  Age: 30 Year
  Sex: Female

DRUGS (5)
  1. LEPONEX / CLOZARIL (CLOZAPINE) LEX+TAB [Suspect]
     Indication: SCHIZOPHRENIA
     Dosage: 12.5 MG, QD
     Route: 048
     Dates: start: 20090910, end: 20090910
  2. LEPONEX / CLOZARIL (CLOZAPINE) LEX+TAB [Suspect]
     Dosage: 25 MG, QD
     Dates: start: 20090911, end: 20090911
  3. LEPONEX / CLOZARIL (CLOZAPINE) LEX+TAB [Suspect]
     Dosage: 50 MG, QD
     Dates: start: 20090912, end: 20090912
  4. LEPONEX / CLOZARIL (CLOZAPINE) LEX+TAB [Suspect]
     Dosage: UNK
     Dates: end: 20100202
  5. RIVOTRIL [Concomitant]

REACTIONS (3)
  - DEPRESSED LEVEL OF CONSCIOUSNESS [None]
  - PYREXIA [None]
  - SYNCOPE [None]
